FAERS Safety Report 20572499 (Version 1)
Quarter: 2022Q1

REPORT INFORMATION
  Report Type: Spontaneous
  Country: US (occurrence: None)
  Receive Date: 20220308
  Receipt Date: 20220308
  Transmission Date: 20220424
  Serious: No
  Sender: FDA-Public Use
  Company Number: None

PATIENT
  Sex: Female
  Weight: 103 kg

DRUGS (11)
  1. IBRANCE [Suspect]
     Active Substance: PALBOCICLIB
     Indication: Breast cancer
     Dosage: OTHER FREQUENCY : QD 21 OF 28 DAYS;?
     Route: 048
  2. HYDROCHLOROTHIAZIDE [Concomitant]
     Active Substance: HYDROCHLOROTHIAZIDE
  3. ALENDRONATE [Concomitant]
     Active Substance: ALENDRONATE SODIUM
  4. ASPIRIN [Concomitant]
     Active Substance: ASPIRIN
  5. ADVIL [Concomitant]
     Active Substance: IBUPROFEN
  6. VITAMIN D [Concomitant]
     Active Substance: VITAMIN D NOS
  7. MUCINEX [Concomitant]
     Active Substance: GUAIFENESIN
  8. LETROZOLE [Concomitant]
     Active Substance: LETROZOLE
  9. HERBALS [Concomitant]
     Active Substance: HERBALS
  10. IBUPROFEN [Concomitant]
     Active Substance: IBUPROFEN
  11. VITAMIN B3 [Concomitant]
     Active Substance: NIACIN

REACTIONS (1)
  - White blood cell count decreased [None]
